FAERS Safety Report 18315053 (Version 2)
Quarter: 2020Q4

REPORT INFORMATION
  Report Type: Report from Study
  Country: None (occurrence: US)
  Receive Date: 20200925
  Receipt Date: 20201127
  Transmission Date: 20210113
  Serious: Yes (Hospitalization, Other)
  Sender: FDA-Public Use
  Company Number: US-ABBVIE-20K-163-3581195-00

PATIENT
  Sex: Female
  Weight: 52.21 kg

DRUGS (3)
  1. IPRATROPIUM [Concomitant]
     Active Substance: IPRATROPIUM
     Indication: RESPIRATION ABNORMAL
  2. FORMOTEROL [Concomitant]
     Active Substance: FORMOTEROL
     Indication: RESPIRATION ABNORMAL
  3. RINVOQ [Suspect]
     Active Substance: UPADACITINIB
     Indication: RHEUMATOID ARTHRITIS
     Route: 048
     Dates: start: 2020

REACTIONS (7)
  - Asthenia [Unknown]
  - Vision blurred [Not Recovered/Not Resolved]
  - Gallbladder disorder [Recovered/Resolved]
  - Pain [Recovered/Resolved]
  - Malaise [Unknown]
  - Vomiting [Recovered/Resolved]
  - Cataract [Not Recovered/Not Resolved]

NARRATIVE: CASE EVENT DATE: 2020
